FAERS Safety Report 18233477 (Version 60)
Quarter: 2024Q2

REPORT INFORMATION
  Report Type: Report from Study
  Country: DE (occurrence: DE)
  Receive Date: 20200904
  Receipt Date: 20240515
  Transmission Date: 20240716
  Serious: Yes (Life-Threatening, Hospitalization, Other)
  Sender: FDA-Public Use
  Company Number: DE-002147023-PHHY2019DE168419

PATIENT
  Age: 79 Year
  Sex: Female
  Weight: 55 kg

DRUGS (31)
  1. PALBOCICLIB [Suspect]
     Active Substance: PALBOCICLIB
     Indication: Breast cancer metastatic
     Dosage: 100 MG (21 DAYS INTAKE, 7DAYS PAUSE)
     Route: 048
     Dates: start: 20190820, end: 20200106
  2. PALBOCICLIB [Suspect]
     Active Substance: PALBOCICLIB
     Indication: Hormone receptor positive HER2 negative breast cancer
     Dosage: 100 MG QD, (21DAYS INTAKE, 7DAYS PAUSE)
     Route: 048
     Dates: start: 20200114, end: 20200601
  3. PALBOCICLIB [Suspect]
     Active Substance: PALBOCICLIB
     Dosage: 100 MG, QD (21DAYS INTAKE, 7DAYS PAUSE)
     Route: 048
     Dates: start: 20200603, end: 20200728
  4. PALBOCICLIB [Suspect]
     Active Substance: PALBOCICLIB
     Dosage: 100 MG, QD (21DAYS INTAKE, 7DAYS PAUSE)
     Route: 048
     Dates: start: 20200812, end: 20210907
  5. PALBOCICLIB [Suspect]
     Active Substance: PALBOCICLIB
     Dosage: 100 MG, QD (21DAYS INTAKE, 7DAYS PAUSE)
     Route: 048
     Dates: start: 20210909, end: 20211103
  6. PALBOCICLIB [Suspect]
     Active Substance: PALBOCICLIB
     Dosage: 100 MG, QD (21DAYS INTAKE, 7DAYS PAUSE)
     Route: 048
     Dates: start: 20211111, end: 20220823
  7. PALBOCICLIB [Suspect]
     Active Substance: PALBOCICLIB
     Dosage: 75 MG, QD (21DAYS INTAKE, 7DAYS PAUSE)
     Route: 048
     Dates: start: 20220901, end: 20221102
  8. PALBOCICLIB [Suspect]
     Active Substance: PALBOCICLIB
     Dosage: 75 MG, QD (21DAYS INTAKE, 7DAYS PAUSE)
     Route: 048
     Dates: start: 20221116, end: 20221129
  9. PALBOCICLIB [Suspect]
     Active Substance: PALBOCICLIB
     Dosage: 75 MG, QD (21DAYS INTAKE, 7DAYS PAUSE)
     Route: 048
     Dates: start: 20221207, end: 20230710
  10. PALBOCICLIB [Suspect]
     Active Substance: PALBOCICLIB
     Dosage: 100 MG, QD (21DAYS INTAKE, 7DAYS PAUSE)
     Route: 048
     Dates: start: 20200601
  11. PALBOCICLIB [Suspect]
     Active Substance: PALBOCICLIB
     Dosage: 100 MG, QD (21DAYS INTAKE, 7DAYS PAUSE)
     Route: 048
     Dates: start: 20200909, end: 20201103
  12. LETROZOLE [Suspect]
     Active Substance: LETROZOLE
     Indication: Breast cancer metastatic
     Dosage: 2.5 MG, QD
     Route: 048
     Dates: start: 20190704, end: 20190819
  13. LETROZOLE [Suspect]
     Active Substance: LETROZOLE
     Indication: Hormone receptor positive HER2 negative breast cancer
  14. KISQALI [Suspect]
     Active Substance: RIBOCICLIB
     Indication: Breast cancer metastatic
     Dosage: 600 MG, QD (21DAYS INTAKE, 7DAYS PAUSE)
     Route: 048
     Dates: start: 20190704, end: 20190717
  15. KISQALI [Suspect]
     Active Substance: RIBOCICLIB
     Indication: Hormone receptor positive HER2 negative breast cancer
     Dosage: UNK, QD
     Route: 048
     Dates: start: 20190718, end: 20190807
  16. KISQALI [Suspect]
     Active Substance: RIBOCICLIB
     Dosage: 400 MG, QD (21DAYS INTAKE, 7DAYS PAUSE)
     Route: 048
     Dates: start: 20190808, end: 20190808
  17. KISQALI [Suspect]
     Active Substance: RIBOCICLIB
     Dosage: UNK, QD
     Route: 048
     Dates: start: 20190808, end: 20190808
  18. TORSEMIDE [Suspect]
     Active Substance: TORSEMIDE
     Indication: Atrial fibrillation
     Dosage: 10 MG (HALF IN AM)
     Route: 065
     Dates: start: 20200727, end: 20220901
  19. TORSEMIDE [Suspect]
     Active Substance: TORSEMIDE
     Indication: Oedema peripheral
     Dosage: 10 MG,  QD (1X DAILY AM)
     Route: 065
     Dates: start: 20230801, end: 20230828
  20. TORSEMIDE [Suspect]
     Active Substance: TORSEMIDE
     Indication: Pleural effusion
     Dosage: 10 MG, (1-0.5-0-0 )
     Dates: start: 20230801, end: 20230828
  21. TORSEMIDE [Suspect]
     Active Substance: TORSEMIDE
     Indication: Cardiac failure
     Dosage: 10 MG,  QD (1XDAILY AM)
     Route: 065
     Dates: start: 20230829
  22. TORSEMIDE [Suspect]
     Active Substance: TORSEMIDE
     Dosage: 10 MG, (1/2 X 10MG PM)
     Route: 065
     Dates: start: 20230801, end: 20230828
  23. FULVESTRANT [Suspect]
     Active Substance: FULVESTRANT
     Dosage: UNK
     Route: 065
     Dates: start: 20190819
  24. ASPIRIN [Concomitant]
     Active Substance: ASPIRIN
     Dosage: 100 MG, QD (ONCE PER DAY AT NOON)
     Route: 065
     Dates: start: 2000
  25. BISOPROLOL FUMARATE\HYDROCHLOROTHIAZIDE [Concomitant]
     Active Substance: BISOPROLOL FUMARATE\HYDROCHLOROTHIAZIDE
     Dosage: 0.5 DF, 1X/DAY IN AM
     Route: 065
     Dates: start: 2000
  26. CALCIUM [Concomitant]
     Active Substance: CALCIUM
     Dosage: 400 MG, QD, (ONCE PER DAY AT NOON)
     Route: 065
     Dates: start: 2016
  27. CHOLECALCIFEROL [Concomitant]
     Active Substance: CHOLECALCIFEROL
     Dosage: 20000 IU, QMO (MONTHLY)
     Route: 065
     Dates: start: 2016
  28. AMLODIPINE BESYLATE\OLMESARTAN MEDOXOMIL [Concomitant]
     Active Substance: AMLODIPINE BESYLATE\OLMESARTAN MEDOXOMIL
     Dosage: 40 MG, QD (ONCE PER DAY IN AM)
     Route: 065
     Dates: start: 2019
  29. BISOPROLOL [Concomitant]
     Active Substance: BISOPROLOL\BISOPROLOL FUMARATE
     Dosage: 0.5 QD (10/25 MG), (ONCE PER DAY IN AM)
     Route: 065
     Dates: start: 2000
  30. NOVALGIN (METAMIZOLE SODIUM) [Concomitant]
     Active Substance: METAMIZOLE SODIUM
     Dosage: 500 MG, PRN
     Route: 065
     Dates: start: 201904
  31. LEVOTHYROXINE [Concomitant]
     Active Substance: LEVOTHYROXINE\LEVOTHYROXINE SODIUM
     Dosage: 88 UG QD (ONCE PER DAY IN AM)
     Route: 065
     Dates: start: 2011

REACTIONS (27)
  - Blood creatinine increased [Not Recovered/Not Resolved]
  - Chronic kidney disease [Not Recovered/Not Resolved]
  - Asthenia [Recovered/Resolved]
  - Hyponatraemia [Recovered/Resolved]
  - Cardiac failure [Not Recovered/Not Resolved]
  - Atrial fibrillation [Recovered/Resolved]
  - Renal impairment [Not Recovered/Not Resolved]
  - Nephrolithiasis [Recovered/Resolved]
  - Glomerular filtration rate decreased [Recovering/Resolving]
  - Hypertension [Recovered/Resolved]
  - Electrocardiogram QT prolonged [Recovered/Resolved]
  - Urinary retention [Not Recovered/Not Resolved]
  - Osteoarthritis [Recovered/Resolved]
  - Osteoarthritis [Not Recovered/Not Resolved]
  - Cystitis [Recovered/Resolved]
  - Anaemia [Not Recovered/Not Resolved]
  - Dyspnoea [Not Recovered/Not Resolved]
  - Dry skin [Recovered/Resolved]
  - Bronchitis [Recovered/Resolved]
  - Blood glucose increased [Recovering/Resolving]
  - Pleural effusion [Not Recovered/Not Resolved]
  - Blood thyroid stimulating hormone increased [Recovered/Resolved]
  - Blood alkaline phosphatase increased [Recovered/Resolved]
  - Urinary tract infection [Not Recovered/Not Resolved]
  - Oedema peripheral [Recovering/Resolving]
  - C-reactive protein increased [Not Recovered/Not Resolved]
  - Infection [Recovered/Resolved]

NARRATIVE: CASE EVENT DATE: 20200727
